FAERS Safety Report 4607538-2 (Version None)
Quarter: 2005Q1

REPORT INFORMATION
  Report Type: 
  Country: None (occurrence: None)
  Receive Date: 20050309
  Receipt Date: 20050224
  Transmission Date: 20050727
  Serious: Yes (Other)
  Sender: FDA-Public Use
  Company Number: 2004CG01916

PATIENT
  Age: 57 Year
  Sex: Female

DRUGS (4)
  1. NOLVADEX [Suspect]
     Indication: BREAST CANCER
     Dosage: 20 MG QD PO
     Route: 048
     Dates: start: 19950101, end: 20050101
  2. FLUOROURACIL [Concomitant]
  3. EPIRUBICIN [Concomitant]
  4. CYCLOPHOSPHAMIDE [Concomitant]

REACTIONS (6)
  - INFLAMMATION [None]
  - URETHRAL CYST [None]
  - URETHRAL DISORDER [None]
  - URETHRAL POLYP [None]
  - VAGINAL INFECTION [None]
  - VULVITIS [None]
